FAERS Safety Report 8663889 (Version 2)
Quarter: 2012Q4

REPORT INFORMATION
  Report Type: 
  Country: NO (occurrence: NO)
  Receive Date: 20120713
  Receipt Date: 20121019
  Transmission Date: 20130627
  Serious: Yes (Death)
  Sender: FDA-Public Use
  Company Number: NO-ROXANE LABORATORIES, INC.-2012-RO-01525RO

PATIENT
  Age: 45 Year
  Sex: Male

DRUGS (2)
  1. CODEINE SULFATE [Suspect]
  2. IBUPROFEN [Suspect]

REACTIONS (1)
  - Death [Fatal]
